FAERS Safety Report 8523015-0 (Version None)
Quarter: 2012Q3

REPORT INFORMATION
  Report Type: 
  Country: None (occurrence: None)
  Receive Date: 20120720
  Receipt Date: 20120712
  Transmission Date: 20120928
  Serious: Yes (Hospitalization)
  Sender: FDA-Public Use
  Company Number: CA-BRISTOL-MYERS SQUIBB COMPANY-15338007

PATIENT
  Age: 63 Year
  Sex: Female

DRUGS (8)
  1. DIOVAN [Concomitant]
  2. PREDNISONE [Concomitant]
  3. MELOXICAM [Concomitant]
  4. ORENCIA [Suspect]
     Indication: RHEUMATOID ARTHRITIS
     Dosage: INF:27 19OC10,08NO11,10DE2011,18AP12,12-14JU12.BTCH.1G64569.MA2014. LT#1L66305,2B69530-SE14
     Route: 042
     Dates: start: 20100503
  5. VITAMIN D [Concomitant]
  6. FOLIC ACID [Concomitant]
  7. TRAMADOL HYDROCHLORIDE/ACETAMINOPHEN [Concomitant]
  8. METHOTREXATE [Suspect]

REACTIONS (6)
  - ENTERITIS [None]
  - TOOTH INFECTION [None]
  - WEIGHT DECREASED [None]
  - ORAL HERPES [None]
  - DIARRHOEA [None]
  - SKIN LESION [None]
